FAERS Safety Report 9288441 (Version 3)
Quarter: 2013Q3

REPORT INFORMATION
  Report Type: Spontaneous
  Country: US (occurrence: US)
  Receive Date: 20130514
  Receipt Date: 20130722
  Transmission Date: 20140515
  Serious: Yes (Other)
  Sender: FDA-Public Use
  Company Number: US-PFIZER INC-2013145399

PATIENT
  Age: 5 Year
  Sex: Male

DRUGS (3)
  1. GENOTROPIN [Suspect]
     Indication: NOONAN SYNDROME
     Dosage: 0.6 MG, DAY
     Route: 058
     Dates: start: 20120821, end: 20130506
  2. GENOTROPIN [Suspect]
     Indication: BODY HEIGHT BELOW NORMAL
  3. ONDANSETRON [Concomitant]
     Dosage: 4 MG, PRN
     Dates: start: 20130426

REACTIONS (3)
  - Sleep apnoea syndrome [Recovering/Resolving]
  - Tonsillar hypertrophy [Recovering/Resolving]
  - Adenoidal hypertrophy [Recovering/Resolving]
